FAERS Safety Report 18265275 (Version 1)
Quarter: 2020Q3

REPORT INFORMATION
  Report Type: Spontaneous
  Country: US (occurrence: US)
  Receive Date: 20200914
  Receipt Date: 20200914
  Transmission Date: 20201103
  Serious: Yes (Hospitalization)
  Sender: FDA-Public Use
  Company Number: US-LEXICON PHARMACEUTICALS, INC-20-1606-00746

PATIENT
  Age: 58 Year
  Sex: Male

DRUGS (5)
  1. METFORMIN [Concomitant]
     Active Substance: METFORMIN HYDROCHLORIDE
  2. XERMELO [Suspect]
     Active Substance: TELOTRISTAT ETHYL
     Indication: NEUROENDOCRINE TUMOUR
     Dates: start: 20200429
  3. JARDIANCE [Concomitant]
     Active Substance: EMPAGLIFLOZIN
  4. XERMELO [Suspect]
     Active Substance: TELOTRISTAT ETHYL
     Dosage: ONLY TAKING XERMELO TWICE DAILY SOME DAYS
  5. OCTREOTIDE. [Concomitant]
     Active Substance: OCTREOTIDE

REACTIONS (2)
  - Hospitalisation [Unknown]
  - Decreased appetite [Unknown]
